FAERS Safety Report 6511127-2 (Version None)
Quarter: 2009Q4

REPORT INFORMATION
  Report Type: 
  Country: None (occurrence: None)
  Receive Date: 20091222
  Receipt Date: 20091218
  Transmission Date: 20100525
  Serious: Yes (Death, Hospitalization)
  Sender: FDA-Public Use
  Company Number: FR-KINGPHARMUSA00001-K200901578

PATIENT
  Age: 88 Year
  Sex: Female

DRUGS (12)
  1. ALTACE [Suspect]
     Dosage: 5 MG, QD
     Route: 048
  2. ISOPTIN [Suspect]
     Dosage: 120 MG, QD
     Route: 048
  3. FUROSEMID [Suspect]
     Dosage: 40 MG, QD
     Route: 048
  4. TRIARESE [Suspect]
     Dosage: 50/25 MG, QD
     Route: 048
  5. PROTHIPENDYL [Suspect]
     Dosage: 80 MG, QD
     Route: 048
     Dates: end: 20080213
  6. PROTHIPENDYL [Suspect]
     Dosage: 40 MG, QD
     Route: 048
     Dates: start: 20080305, end: 20080305
  7. PROTHIPENDYL [Suspect]
     Dosage: 40 MG, QD
     Route: 048
     Dates: start: 20080307, end: 20090307
  8. PROTHIPENDYL [Suspect]
     Dosage: 80 MG, QD
     Route: 048
     Dates: start: 20080309, end: 20080903
  9. RISPERDAL [Suspect]
     Dosage: 1 MG, QD
     Dates: start: 20080228, end: 20080303
  10. RISPERDAL [Suspect]
     Dosage: 0.5 MG, QD
     Dates: start: 20080304, end: 20080310
  11. MOTILIUM [Concomitant]
     Dosage: UNK
     Dates: start: 20080305, end: 20080310
  12. CIPROFLOXACIN [Concomitant]
     Dosage: UNK
     Dates: start: 20080304, end: 20080310

REACTIONS (11)
  - DEATH [None]
  - DEPRESSION [None]
  - DIARRHOEA [None]
  - DIZZINESS [None]
  - GASTROENTERITIS NOROVIRUS [None]
  - GENERAL PHYSICAL HEALTH DETERIORATION [None]
  - HAEMATOCHEZIA [None]
  - HYPOTENSION [None]
  - NAUSEA [None]
  - PNEUMONIA [None]
  - VOMITING [None]
